FAERS Safety Report 16276718 (Version 2)
Quarter: 2020Q3

REPORT INFORMATION
  Report Type: Report from Study
  Country: TR (occurrence: TR)
  Receive Date: 20190506
  Receipt Date: 20190514
  Transmission Date: 20201104
  Serious: Yes (Death, Other)
  Sender: FDA-Public Use
  Company Number: TR-PFIZER INC-2019093056

PATIENT
  Age: 57 Year
  Weight: 70 kg

DRUGS (1)
  1. TALAZOPARIB. [Suspect]
     Active Substance: TALAZOPARIB
     Dosage: UNK
     Dates: end: 20190404

REACTIONS (3)
  - Atypical pneumonia [Unknown]
  - Thrombocytopenia [Unknown]
  - Neoplasm progression [Fatal]

NARRATIVE: CASE EVENT DATE: 20190404
